FAERS Safety Report 8177641 (Version 8)
Quarter: 2013Q1

REPORT INFORMATION
  Report Type: Report from Study
  Country: US (occurrence: US)
  Receive Date: 20111012
  Receipt Date: 20130321
  Transmission Date: 20140127
  Serious: Yes (Hospitalization)
  Sender: FDA-Public Use
  Company Number: US-ACTELION-A-NJ2011-54896

PATIENT
  Age: 53 Year
  Sex: Female
  Weight: 64.9 kg

DRUGS (5)
  1. TRACLEER [Suspect]
     Indication: PULMONARY ARTERIAL HYPERTENSION
     Dosage: UNK
     Route: 048
  2. TYVASO [Suspect]
     Dosage: UNK
     Route: 055
     Dates: start: 20091216
  3. REVATIO [Suspect]
  4. OXYGEN [Concomitant]
  5. ALDACTONE [Concomitant]

REACTIONS (8)
  - Haemorrhage [Unknown]
  - Gastrointestinal disorder [Unknown]
  - Gastrointestinal haemorrhage [Unknown]
  - Anaemia [Unknown]
  - Haemoglobin decreased [Unknown]
  - Transfusion [Unknown]
  - Pulmonary oedema [Unknown]
  - Swelling [Unknown]
